FAERS Safety Report 9346048 (Version 12)
Quarter: 2019Q3

REPORT INFORMATION
  Report Type: Report from Study
  Country: CA (occurrence: CA)
  Receive Date: 20130613
  Receipt Date: 20190926
  Transmission Date: 20191005
  Serious: Yes (Life-Threatening, Other)
  Sender: FDA-Public Use
  Company Number: CA-ROCHE-1099505

PATIENT
  Age: 72 Year
  Sex: Female
  Weight: 102.5 kg

DRUGS (21)
  1. RITUXAN [Suspect]
     Active Substance: RITUXIMAB
     Route: 042
     Dates: start: 20130604, end: 20130604
  2. LORAZEPAM. [Concomitant]
     Active Substance: LORAZEPAM
  3. BENADRYL [Concomitant]
     Active Substance: DIPHENHYDRAMINE HYDROCHLORIDE
     Indication: PREMEDICATION
     Route: 048
     Dates: start: 20120725, end: 20130604
  4. TYLENOL [Concomitant]
     Active Substance: ACETAMINOPHEN
     Indication: PREMEDICATION
     Route: 048
     Dates: start: 20120725, end: 20130604
  5. SOLU-MEDROL [Concomitant]
     Active Substance: METHYLPREDNISOLONE SODIUM SUCCINATE
     Indication: PREMEDICATION
     Route: 042
     Dates: start: 20120725, end: 20130604
  6. SIMVASTATIN. [Concomitant]
     Active Substance: SIMVASTATIN
  7. ATENOLOL. [Concomitant]
     Active Substance: ATENOLOL
  8. OMEPRAZOLE. [Concomitant]
     Active Substance: OMEPRAZOLE
  9. ADALAT [Concomitant]
     Active Substance: NIFEDIPINE
  10. MAVIK [Concomitant]
     Active Substance: TRANDOLAPRIL
  11. WARFARIN [Concomitant]
     Active Substance: WARFARIN
  12. RITUXAN [Suspect]
     Active Substance: RITUXIMAB
     Indication: RHEUMATOID ARTHRITIS
     Dosage: LAST DOSE WAS ON 12/JUN/2014, 18/JUL/2014
     Route: 042
     Dates: start: 20120725
  13. SLOW-K [Concomitant]
     Active Substance: POTASSIUM CHLORIDE
  14. HYDROCHLOROTHIAZIDE. [Concomitant]
     Active Substance: HYDROCHLOROTHIAZIDE
     Route: 065
  15. ACETAMINOPHEN. [Concomitant]
     Active Substance: ACETAMINOPHEN
     Dosage: AS REQUIRED?AND PRIOR TO INFUSION
     Route: 048
     Dates: start: 20120725, end: 20130604
  16. SYMBICORT [Concomitant]
     Active Substance: BUDESONIDE\FORMOTEROL FUMARATE DIHYDRATE
  17. VESICARE [Concomitant]
     Active Substance: SOLIFENACIN SUCCINATE
  18. METHYLPREDNISOLONE. [Concomitant]
     Active Substance: METHYLPREDNISOLONE
     Dosage: PRIOR TO INFUSION
     Route: 042
     Dates: start: 20120725
  19. BUPROPION. [Concomitant]
     Active Substance: BUPROPION
     Dosage: SR
     Route: 065
  20. HYDROMORPHONE [Concomitant]
     Active Substance: HYDROMORPHONE
     Route: 065
  21. DIPHENHYDRAMINE HCL [Concomitant]
     Active Substance: DIPHENHYDRAMINE HYDROCHLORIDE
     Dosage: PRIOR TO INFUSION
     Route: 048
     Dates: start: 20120725

REACTIONS (21)
  - Palpitations [Recovered/Resolved]
  - Heart rate increased [Unknown]
  - Flushing [Recovered/Resolved]
  - Malaise [Not Recovered/Not Resolved]
  - Throat tightness [Recovering/Resolving]
  - Throat irritation [Recovering/Resolving]
  - Hypoaesthesia [Recovering/Resolving]
  - Dyspnoea [Recovered/Resolved]
  - Tinnitus [Recovered/Resolved]
  - Infusion related reaction [Recovering/Resolving]
  - Rales [Unknown]
  - Tremor [Recovered/Resolved]
  - Headache [Recovered/Resolved]
  - Pain [Unknown]
  - Paraesthesia [Recovering/Resolving]
  - Atrial fibrillation [Unknown]
  - Atrial fibrillation [Unknown]
  - Sinus congestion [Recovered/Resolved]
  - Oxygen saturation decreased [Unknown]
  - Dysgeusia [Recovered/Resolved]
  - Pharyngeal mass [Not Recovered/Not Resolved]

NARRATIVE: CASE EVENT DATE: 20120807
